FAERS Safety Report 5078099-1 (Version None)
Quarter: 2006Q3

REPORT INFORMATION
  Report Type: 
  Country: None (occurrence: None)
  Receive Date: 20060811
  Receipt Date: 20060728
  Transmission Date: 20061208
  Serious: Yes (Other)
  Sender: FDA-Public Use
  Company Number: PHEH2006US09722

PATIENT
  Age: 59 Year
  Sex: Female

DRUGS (1)
  1. FEMARA [Suspect]
     Indication: BREAST CANCER

REACTIONS (6)
  - ARTHRALGIA [None]
  - ARTHROPATHY [None]
  - DIZZINESS [None]
  - FATIGUE [None]
  - JOINT SWELLING [None]
  - OSTEOARTHRITIS [None]
